FAERS Safety Report 12242981 (Version 1)
Quarter: 2016Q2

REPORT INFORMATION
  Report Type: Spontaneous
  Country: US (occurrence: US)
  Receive Date: 20160406
  Receipt Date: 20160406
  Transmission Date: 20160815
  Serious: Yes (Other)
  Sender: FDA-Public Use
  Company Number: US-PFIZER INC-2016192264

PATIENT
  Age: 39 Year
  Sex: Female

DRUGS (8)
  1. GABAPENTIN. [Suspect]
     Active Substance: GABAPENTIN
     Dosage: UNK
  2. VITAMIN B12 [Suspect]
     Active Substance: CYANOCOBALAMIN
     Dosage: UNK
  3. OXYBUTYNIN [Suspect]
     Active Substance: OXYBUTYNIN
     Dosage: UNK
  4. FIORICET [Suspect]
     Active Substance: ACETAMINOPHEN\BUTALBITAL\CAFFEINE
     Dosage: UNK
  5. CYCLOBENZAPRINE [Suspect]
     Active Substance: CYCLOBENZAPRINE
     Dosage: UNK
  6. RISPERIDONE. [Suspect]
     Active Substance: RISPERIDONE
  7. TOPIRAMATE. [Suspect]
     Active Substance: TOPIRAMATE
  8. ZOFRAN [Suspect]
     Active Substance: ONDANSETRON HYDROCHLORIDE

REACTIONS (2)
  - Alcohol abuse [Unknown]
  - Drug abuse [Unknown]
